FAERS Safety Report 8024316-5 (Version None)
Quarter: 2012Q1

REPORT INFORMATION
  Report Type: 
  Country: None (occurrence: None)
  Receive Date: 20120105
  Receipt Date: 20111229
  Transmission Date: 20120608
  Serious: Yes (Hospitalization)
  Sender: FDA-Public Use
  Company Number: JP-SANOFI-AVENTIS-2011SA078760

PATIENT
  Age: 76 Year
  Sex: Male
  Weight: 45 kg

DRUGS (20)
  1. GIMERACIL/OTERACIL POTASSIUM/TEGAFUR [Suspect]
     Route: 048
     Dates: start: 20110603, end: 20110617
  2. GOSHAJINKIGAN [Concomitant]
     Indication: NERVOUS SYSTEM DISORDER
     Route: 048
     Dates: start: 20111104
  3. OXALIPLATIN [Suspect]
     Indication: GASTRIC CANCER
     Route: 041
     Dates: start: 20110603, end: 20110603
  4. OXALIPLATIN [Suspect]
     Route: 041
     Dates: start: 20110708
  5. GIMERACIL/OTERACIL POTASSIUM/TEGAFUR [Suspect]
     Route: 048
     Dates: start: 20111104, end: 20111115
  6. UREA [Concomitant]
     Indication: DRY SKIN
     Dates: start: 20110819
  7. OXALIPLATIN [Suspect]
     Dosage: DOSE: 83 MG/BODY
     Route: 041
     Dates: start: 20111209
  8. OXALIPLATIN [Suspect]
     Route: 041
     Dates: start: 20111104
  9. OXALIPLATIN [Suspect]
     Route: 041
     Dates: start: 20110826
  10. OXALIPLATIN [Suspect]
     Route: 041
     Dates: start: 20110916
  11. OXALIPLATIN [Suspect]
     Route: 041
     Dates: start: 20111014
  12. OXALIPLATIN [Suspect]
     Route: 041
     Dates: start: 20110729
  13. GIMERACIL/OTERACIL POTASSIUM/TEGAFUR [Suspect]
     Route: 048
     Dates: start: 20110708
  14. RISUMIC [Concomitant]
     Indication: BLOOD PRESSURE DECREASED
     Route: 048
     Dates: start: 20110922
  15. BLADDERON [Concomitant]
     Indication: POLLAKIURIA
     Route: 048
     Dates: start: 20111110
  16. GIMERACIL/OTERACIL POTASSIUM/TEGAFUR [Suspect]
     Route: 048
     Dates: start: 20110826
  17. GIMERACIL/OTERACIL POTASSIUM/TEGAFUR [Suspect]
     Route: 048
     Dates: start: 20110916
  18. GIMERACIL/OTERACIL POTASSIUM/TEGAFUR [Suspect]
     Route: 048
     Dates: start: 20111014
  19. GIMERACIL/OTERACIL POTASSIUM/TEGAFUR [Suspect]
     Indication: GASTRIC CANCER
     Route: 048
     Dates: start: 20110729
  20. GIMERACIL/OTERACIL POTASSIUM/TEGAFUR [Suspect]
     Route: 048
     Dates: start: 20111209

REACTIONS (1)
  - ARRHYTHMIA [None]
